FAERS Safety Report 6724130-4 (Version None)
Quarter: 2010Q2

REPORT INFORMATION
  Report Type: 
  Country: None (occurrence: None)
  Receive Date: 20100513
  Receipt Date: 20100505
  Transmission Date: 20101027
  Serious: Yes (Hospitalization, Disabling)
  Sender: FDA-Public Use
  Company Number: CA-ROCHE-701536

PATIENT
  Age: 48 Year
  Sex: Female
  Weight: 62.1 kg

DRUGS (10)
  1. AVASTIN [Suspect]
     Indication: DRUG USE FOR UNKNOWN INDICATION
     Dosage: FREQUENCY: ONCE. ROUTE: INTRAVENOUS (NOT OTHERWISE SPECIFIED).
     Route: 042
  2. AVASTIN [Suspect]
     Route: 042
  3. AVASTIN [Suspect]
     Dosage: FREQUENCY: ONCE
     Route: 042
  4. ACEBUTOLOL [Concomitant]
     Route: 065
  5. CISPLATIN [Concomitant]
     Dosage: FORM: SOLUTION INTRAVENOUS.
  6. DYAZIDE [Concomitant]
  7. FLUOROURACIL [Concomitant]
  8. FRAGMIN [Concomitant]
     Dosage: FORM: SOLUTION INTRAVENOUS
     Route: 058
  9. LEUCOVORIN CALCIUM [Concomitant]
  10. NEUPOGEN [Concomitant]
     Dosage: FORM: SOLUTION INTRAVENOUS.
     Route: 058

REACTIONS (7)
  - ASTHENIA [None]
  - BLOOD GASES ABNORMAL [None]
  - BRONCHITIS [None]
  - CHEST PAIN [None]
  - DYSPNOEA [None]
  - MUSCULOSKELETAL PAIN [None]
  - RESPIRATORY PARALYSIS [None]
